FAERS Safety Report 5354390-6 (Version None)
Quarter: 2007Q2

REPORT INFORMATION
  Report Type: 
  Country: None (occurrence: None)
  Receive Date: 20070612
  Receipt Date: 20070601
  Transmission Date: 20071010
  Serious: Yes (Other)
  Sender: FDA-Public Use
  Company Number: US-JNJFOC-20070601716

PATIENT
  Age: 49 Year
  Sex: Female

DRUGS (1)
  1. FLOXIN [Suspect]
     Indication: INFECTION
     Route: 065

REACTIONS (9)
  - AMNESIA [None]
  - ARTHRALGIA [None]
  - INSOMNIA [None]
  - NEURALGIA [None]
  - PAIN [None]
  - PALPITATIONS [None]
  - PANIC ATTACK [None]
  - PAROSMIA [None]
  - TINNITUS [None]
